FAERS Safety Report 24847206 (Version 1)
Quarter: 2025Q1

REPORT INFORMATION
  Report Type: Spontaneous
  Country: US (occurrence: US)
  Receive Date: 20250116
  Receipt Date: 20250116
  Transmission Date: 20250409
  Serious: No
  Sender: Steriscience PTE
  Company Number: US-STERISCIENCE B.V.-2024-ST-002088

PATIENT
  Age: 39 Year
  Sex: Male

DRUGS (10)
  1. MYCOPHENOLATE MOFETIL [Suspect]
     Active Substance: MYCOPHENOLATE MOFETIL
     Indication: Periorbital inflammation
     Route: 065
  2. MYCOPHENOLATE MOFETIL [Suspect]
     Active Substance: MYCOPHENOLATE MOFETIL
     Indication: Antinuclear antibody increased
     Route: 065
  3. METHOTREXATE [Suspect]
     Active Substance: METHOTREXATE
     Indication: Periorbital inflammation
     Dosage: 15 MILLIGRAM, QW FOR 2 MONTHS
     Route: 048
  4. METHOTREXATE [Suspect]
     Active Substance: METHOTREXATE
     Indication: Antinuclear antibody increased
  5. INFLIXIMAB [Suspect]
     Active Substance: INFLIXIMAB
     Indication: Periorbital inflammation
     Dosage: 10 MILLIGRAM/KILOGRAM, MONTHLY
     Route: 065
  6. TOCILIZUMAB [Suspect]
     Active Substance: TOCILIZUMAB
     Indication: Periorbital inflammation
     Dosage: 8 MILLIGRAM/KILOGRAM, MONTHLY
  7. RITUXIMAB [Suspect]
     Active Substance: RITUXIMAB
     Indication: Periorbital inflammation
     Route: 065
  8. PREDNISONE [Suspect]
     Active Substance: PREDNISONE
     Indication: Periorbital inflammation
     Route: 065
  9. PREDNISONE [Suspect]
     Active Substance: PREDNISONE
     Route: 048
  10. PREDNISONE [Suspect]
     Active Substance: PREDNISONE
     Route: 065

REACTIONS (1)
  - Drug ineffective for unapproved indication [Unknown]
